FAERS Safety Report 8789396 (Version 1)
Quarter: 2012Q4

REPORT INFORMATION
  Report Type: Spontaneous
  Country: US (occurrence: None)
  Receive Date: 20120904
  Receipt Date: 20120904
  Transmission Date: 20130627
  Serious: Yes (Hospitalization)
  Sender: FDA-Public Use
  Company Number: FK201202518

PATIENT
  Age: 76 Year
  Sex: Female
  Weight: 74.4 kg

DRUGS (11)
  1. CISPLATIN [Suspect]
     Indication: NON-HODGKIN^S LYMPHOMA
     Dates: start: 201207
  2. CYTARABINE [Suspect]
     Indication: LYMPHOMA (NON-HODGKIN^S)
     Dates: start: 201207
  3. RITUXIMAB [Suspect]
     Dates: start: 201207
  4. INOTUZUMAB OZOGAMICIN [Suspect]
     Dates: start: 20120329
  5. COMPAZINE [Concomitant]
  6. ONDANSETRON HYDROCHLORIDE (ONDANSETRON HYDRCHLORIDE) [Concomitant]
  7. ATOVASTATIN (ATORVASTATIN) [Concomitant]
  8. ESOMEPRAZOLE (ESOMEPRAZOLE) [Concomitant]
  9. LEVOTHYROXINE (LEVOTHYROXINE) [Concomitant]
  10. BEANO (ALPHA-D-GALACTOSIDASE) [Concomitant]
  11. COLESTYRAMINE (COLESTYRAMINE) [Concomitant]

REACTIONS (2)
  - Renal failure [None]
  - Pneumonia [None]
